FAERS Safety Report 6841970-1 (Version None)
Quarter: 2010Q3

REPORT INFORMATION
  Report Type: 
  Country: None (occurrence: None)
  Receive Date: 20100709
  Receipt Date: 20100629
  Transmission Date: 20110219
  Serious: Yes (Other)
  Sender: FDA-Public Use
  Company Number: 2010MA000381

PATIENT
  Age: 89 Year
  Sex: Male

DRUGS (2)
  1. TEMAZEPAM [Suspect]
  2. BUTRANS [Suspect]
     Dosage: 5 UG;QH;TDER
     Route: 062
     Dates: start: 20100601

REACTIONS (2)
  - CONFUSIONAL STATE [None]
  - VOMITING [None]
